FAERS Safety Report 25952082 (Version 1)
Quarter: 2025Q4

REPORT INFORMATION
  Report Type: Spontaneous
  Country: US (occurrence: None)
  Receive Date: 20251022
  Receipt Date: 20251022
  Transmission Date: 20260118
  Serious: Yes (Hospitalization)
  Sender: FDA-CTU
  Company Number: None

PATIENT
  Age: 51 Year
  Sex: Female

DRUGS (29)
  1. KESIMPTA [Suspect]
     Active Substance: OFATUMUMAB
     Dosage: 0.4ML MNTHLY?
     Dates: start: 20040404
  2. TYLENOLE/S (ACETAMINOPHEN) [Concomitant]
  3. METOPROLOL SUCCINATE [Concomitant]
     Active Substance: METOPROLOL SUCCINATE
  4. MONTELUKAST [Concomitant]
     Active Substance: MONTELUKAST
  5. PROMETHAZINE DM [Concomitant]
     Active Substance: DEXTROMETHORPHAN HYDROBROMIDE\PROMETHAZINE HYDROCHLORIDE
  6. HYDRALAZINE [Concomitant]
     Active Substance: HYDRALAZINE HYDROCHLORIDE
  7. MAGNESIUM [Concomitant]
     Active Substance: MAGNESIUM
  8. MULTIVITAMIN ADULT 50+ [Concomitant]
  9. POTASSIUM CHLORIDE [Concomitant]
     Active Substance: POTASSIUM CHLORIDE
  10. VITAMIN D2 [Concomitant]
     Active Substance: ERGOCALCIFEROL
  11. PRATROPI/ALB [Concomitant]
  12. LORAZEPAM [Concomitant]
     Active Substance: LORAZEPAM
  13. CYCLOBENZAPRINE [Concomitant]
     Active Substance: CYCLOBENZAPRINE
  14. DICLOFENAC 1% CFI [Concomitant]
  15. FAMOTIDINE [Concomitant]
     Active Substance: FAMOTIDINE
  16. FLUCONAZOLE [Concomitant]
     Active Substance: FLUCONAZOLE
  17. GABAPENTIN [Suspect]
     Active Substance: GABAPENTIN
  18. LEVOTHYROXINE [Concomitant]
     Active Substance: LEVOTHYROXINE
  19. NYSTATIN [Suspect]
     Active Substance: NYSTATIN
  20. PERCOCET [Concomitant]
     Active Substance: ACETAMINOPHEN\OXYCODONE HYDROCHLORIDE
  21. PRAVASTATIN [Concomitant]
     Active Substance: PRAVASTATIN
  22. PREDNISONE [Concomitant]
     Active Substance: PREDNISONE
  23. COLLAGENASE SANTYL [Concomitant]
     Active Substance: COLLAGENASE CLOSTRIDIUM HISTOLYTICUM
  24. RISEDRONATE SOD IMM REL TB PK [Concomitant]
  25. ALBUTEROL HFA I NH [Concomitant]
  26. SYMBICORT [Concomitant]
     Active Substance: BUDESONIDE\FORMOTEROL FUMARATE DIHYDRATE
  27. LOSARTAN [Concomitant]
     Active Substance: LOSARTAN
  28. KESIMPTA [Concomitant]
     Active Substance: OFATUMUMAB
  29. QUL;IPTA [Concomitant]

REACTIONS (1)
  - Chronic obstructive pulmonary disease [None]

NARRATIVE: CASE EVENT DATE: 20251014
